FAERS Safety Report 23639461 (Version 1)
Quarter: 2024Q1

REPORT INFORMATION
  Report Type: Report from Study
  Country: FR (occurrence: FR)
  Receive Date: 20240316
  Receipt Date: 20240316
  Transmission Date: 20240409
  Serious: Yes (Hospitalization, Other)
  Sender: FDA-Public Use
  Company Number: FR-CELLTRION INC.-2024FR006154

PATIENT

DRUGS (5)
  1. ADALIMUMAB [Suspect]
     Active Substance: ADALIMUMAB\ISOPROPYL ALCOHOL
     Indication: Colitis ulcerative
     Dosage: 40 MG, EVERY 2 WEEKS
     Route: 058
     Dates: start: 201906
  2. ADALIMUMAB [Suspect]
     Active Substance: ADALIMUMAB\ISOPROPYL ALCOHOL
     Indication: Colitis ulcerative
     Dosage: FORM STRENGTH 80 MILLIGRAMS
     Route: 058
     Dates: start: 20180425, end: 20180425
  3. ADALIMUMAB [Suspect]
     Active Substance: ADALIMUMAB\ISOPROPYL ALCOHOL
     Dosage: 80 MG, Q2WEEKS; FORM STRENGTH 80 MILLIGRAMS
     Route: 058
     Dates: start: 201906, end: 20190605
  4. ADALIMUMAB [Suspect]
     Active Substance: ADALIMUMAB\ISOPROPYL ALCOHOL
     Dosage: FORM STRENGTH 80 MILLIGRAMS
     Route: 058
  5. ROWASA [Concomitant]
     Active Substance: MESALAMINE
     Indication: Gastrointestinal disorder
     Dosage: 2 G, EVERY 1 DAY
     Route: 048
     Dates: start: 20170601

REACTIONS (3)
  - Rectal haemorrhage [Recovered/Resolved]
  - Hospitalisation [Unknown]
  - Abdominal pain [Recovered/Resolved]

NARRATIVE: CASE EVENT DATE: 20190605
